FAERS Safety Report 9570882 (Version 2)
Quarter: 2013Q4

REPORT INFORMATION
  Report Type: Spontaneous
  Country: US (occurrence: US)
  Receive Date: 20131001
  Receipt Date: 20131001
  Transmission Date: 20140711
  Serious: Yes (Hospitalization, Other)
  Sender: FDA-Public Use
  Company Number: US-AMGEN-USASP2012057513

PATIENT
  Age: 62 Year
  Sex: Female

DRUGS (1)
  1. ENBREL [Suspect]
     Indication: RHEUMATOID ARTHRITIS
     Dosage: 50 MG, QWK
     Route: 058
     Dates: start: 2001

REACTIONS (5)
  - Surgery [Recovered/Resolved]
  - Spinal operation [Recovered/Resolved]
  - Sinus headache [Recovered/Resolved]
  - Paranasal sinus hypersecretion [Recovered/Resolved]
  - Nervousness [Recovered/Resolved]
